FAERS Safety Report 6939227-3 (Version None)
Quarter: 2010Q3

REPORT INFORMATION
  Report Type: 
  Country: None (occurrence: None)
  Receive Date: 20100824
  Receipt Date: 20100714
  Transmission Date: 20110219
  Serious: Yes (Hospitalization, Other)
  Sender: FDA-Public Use
  Company Number: US-BAYER-200939482NA

PATIENT
  Age: 25 Year
  Sex: Female
  Weight: 64 kg

DRUGS (5)
  1. YASMIN [Suspect]
     Indication: PRODUCT USED FOR UNKNOWN INDICATION
     Dates: start: 20040309, end: 20061001
  2. COLAZAL [Concomitant]
     Dates: start: 20020101, end: 20100101
  3. PREDNISONE [Concomitant]
     Dosage: 10-60MG DAILY
     Dates: start: 19980101, end: 20060101
  4. LEXAPRO [Concomitant]
     Dosage: 10-20 MG DAILY
     Dates: start: 20050101, end: 20080101
  5. PROTONIX [Concomitant]
     Dosage: 40 MG DAILY

REACTIONS (6)
  - DEEP VEIN THROMBOSIS [None]
  - DYSPNOEA [None]
  - PAIN IN EXTREMITY [None]
  - PLEURITIC PAIN [None]
  - PULMONARY EMBOLISM [None]
  - PYREXIA [None]
